FAERS Safety Report 5620070-2 (Version None)
Quarter: 2008Q1

REPORT INFORMATION
  Report Type: 
  Country: None (occurrence: None)
  Receive Date: 20080208
  Receipt Date: 20080130
  Transmission Date: 20080703
  Serious: Yes (Hospitalization)
  Sender: FDA-Public Use
  Company Number: US-GILEAD-2007-0014542

PATIENT
  Sex: Female
  Weight: 90.346 kg

DRUGS (17)
  1. AMBRISENTAN [Suspect]
     Indication: PULMONARY HYPERTENSION
     Dates: start: 20070927, end: 20071205
  2. NORVASC [Concomitant]
     Dates: start: 20040101
  3. LOVENOX [Concomitant]
     Dates: start: 20070601, end: 20071129
  4. COUMADIN [Concomitant]
     Dates: start: 20071001, end: 20071129
  5. LASIX [Concomitant]
     Dates: start: 20071001
  6. PROTONIX [Concomitant]
     Dates: start: 20070919
  7. EXJADE [Concomitant]
     Dates: start: 20060101
  8. IMITREX [Concomitant]
     Dates: start: 20070201
  9. PERCOCET [Concomitant]
     Dates: start: 19970101
  10. OXYCONTIN [Concomitant]
     Dates: start: 19990101
  11. CYMBALTA [Concomitant]
     Dates: start: 20070919
  12. DILAUDID [Concomitant]
     Dates: start: 20070924
  13. PHENERGAN HCL [Concomitant]
     Dates: start: 20070924
  14. FOLIC ACID [Concomitant]
     Dates: start: 19970101
  15. AMBIEN [Concomitant]
     Dates: start: 20071129, end: 20071206
  16. BENADRYL [Concomitant]
     Dates: start: 20071129, end: 20071206
  17. TYLENOL (CAPLET) [Concomitant]
     Dates: start: 20071201, end: 20071201

REACTIONS (2)
  - MIGRAINE [None]
  - SICKLE CELL ANAEMIA WITH CRISIS [None]
